FAERS Safety Report 12749260 (Version 1)
Quarter: 2016Q3

REPORT INFORMATION
  Report Type: Spontaneous
  Country: US (occurrence: US)
  Receive Date: 20160915
  Receipt Date: 20160915
  Transmission Date: 20161109
  Serious: No
  Sender: FDA-Public Use
  Company Number: US-ASTELLAS-2016US013448

PATIENT
  Age: 67 Year
  Sex: Male

DRUGS (6)
  1. XTANDI [Suspect]
     Active Substance: ENZALUTAMIDE
     Indication: PROSTATE CANCER
     Route: 048
     Dates: start: 20160319
  2. LUPRON [Suspect]
     Active Substance: LEUPROLIDE ACETATE
     Indication: PRODUCT USED FOR UNKNOWN INDICATION
     Dosage: UNK, UNKNOWN FREQ.
     Route: 065
  3. HCTZ [Suspect]
     Active Substance: HYDROCHLOROTHIAZIDE
     Indication: PRODUCT USED FOR UNKNOWN INDICATION
     Dosage: UNK UNK, UNKNOWN FREQ.
     Route: 065
  4. XTANDI [Suspect]
     Active Substance: ENZALUTAMIDE
     Indication: PROSTATE CANCER METASTATIC
     Route: 048
     Dates: start: 201606
  5. XTANDI [Suspect]
     Active Substance: ENZALUTAMIDE
     Indication: PROSTATIC SPECIFIC ANTIGEN INCREASED
  6. LISINOPRIL. [Concomitant]
     Active Substance: LISINOPRIL
     Indication: PRODUCT USED FOR UNKNOWN INDICATION
     Dosage: UNK UNK, UNKNOWN FREQ.
     Route: 065

REACTIONS (14)
  - Constipation [Unknown]
  - Pain in extremity [Not Recovered/Not Resolved]
  - Fatigue [Unknown]
  - Depression [Not Recovered/Not Resolved]
  - Abdominal pain upper [Unknown]
  - Back pain [Not Recovered/Not Resolved]
  - Musculoskeletal pain [Not Recovered/Not Resolved]
  - Dizziness [Unknown]
  - Alopecia [Not Recovered/Not Resolved]
  - Hypotrichosis [Not Recovered/Not Resolved]
  - Bone pain [Not Recovered/Not Resolved]
  - Vision blurred [Recovered/Resolved]
  - Insomnia [Not Recovered/Not Resolved]
  - Dizziness postural [Recovered/Resolved]

NARRATIVE: CASE EVENT DATE: 20160418
